FAERS Safety Report 10515547 (Version 2)
Quarter: 2014Q4

REPORT INFORMATION
  Report Type: Spontaneous
  Country: US (occurrence: None)
  Receive Date: 20141009
  Receipt Date: 20141023
  Transmission Date: 20150528
  Serious: Yes (Hospitalization, Other)
  Sender: FDA-Public Use
  Company Number: DSC201409-000014

PATIENT
  Age: 1 Day
  Sex: Male
  Weight: .82 kg

DRUGS (3)
  1. SURFAXIN [Suspect]
     Active Substance: 1-PALMITOYL-2-OLEOYL-SN-GLYCERO-3-(PHOSPHO-RAC-(1-GLYCEROL)), SODIUM SALT\COLFOSCERIL PALMITATE\PALMITIC ACID\SINAPULTIDE
     Indication: RESPIRATORY DISTRESS
     Dates: start: 20140604
  2. AMPICILLIN (AMPICILLIN) [Concomitant]
     Active Substance: AMPICILLIN
  3. GENTAMICIN (GENTAMICIN) [Concomitant]
     Active Substance: GENTAMICIN

REACTIONS (4)
  - Renal failure [None]
  - Haemorrhage intracranial [None]
  - Pulmonary haemorrhage [None]
  - Hepatic failure [None]

NARRATIVE: CASE EVENT DATE: 20140606
